FAERS Safety Report 13167809 (Version 1)
Quarter: 2017Q1

REPORT INFORMATION
  Report Type: Spontaneous
  Country: RU (occurrence: RU)
  Receive Date: 20170131
  Receipt Date: 20170131
  Transmission Date: 20170428
  Serious: Yes (Other)
  Sender: FDA-Public Use
  Company Number: RU-TEVA-732160ISR

PATIENT
  Age: 52 Year
  Sex: Female

DRUGS (1)
  1. GLATIRAMER ACETATE. [Suspect]
     Active Substance: GLATIRAMER ACETATE
     Indication: MULTIPLE SCLEROSIS
     Dosage: UNKNOWN FORM STRENGTH

REACTIONS (1)
  - Meningioma [Not Recovered/Not Resolved]
